FAERS Safety Report 12359467 (Version 1)
Quarter: 2016Q2

REPORT INFORMATION
  Report Type: Spontaneous
  Country: US (occurrence: None)
  Receive Date: 20160511
  Receipt Date: 20160511
  Transmission Date: 20160815
  Serious: Yes (Other)
  Sender: FDA-Public Use
  Company Number: None

PATIENT
  Age: 84 Year
  Sex: Female
  Weight: 60.33 kg

DRUGS (16)
  1. TRAMADOL, 50 MG [Suspect]
     Active Substance: TRAMADOL
     Indication: PELVIC PAIN
     Dosage: Q4H PRN
     Route: 048
     Dates: start: 20150629, end: 20150712
  2. WARFARIN [Concomitant]
     Active Substance: WARFARIN
  3. SENNA [Concomitant]
     Active Substance: SENNA LEAF\SENNOSIDES\SENNOSIDES A AND B
  4. LIDOCAINE PATCH [Concomitant]
     Active Substance: LIDOCAINE
  5. TRAMADOL, 50 MG [Suspect]
     Active Substance: TRAMADOL
     Indication: PELVIC FRACTURE
     Dosage: Q4H PRN
     Route: 048
     Dates: start: 20150629, end: 20150712
  6. ROSUVASTATIN. [Concomitant]
     Active Substance: ROSUVASTATIN
  7. CITALOPRAM [Concomitant]
     Active Substance: CITALOPRAM HYDROBROMIDE
  8. ASPIRIN. [Concomitant]
     Active Substance: ASPIRIN
  9. FERROUS SULFATE. [Concomitant]
     Active Substance: FERROUS SULFATE
  10. CALCIUM/VITAMIN D [Concomitant]
     Active Substance: CALCIUM\VITAMIN D
  11. DOCUSATE [Concomitant]
     Active Substance: DOCUSATE
  12. PEG [Concomitant]
     Active Substance: POLYETHYLENE GLYCOLS
  13. ACETAMINOPHEN. [Concomitant]
     Active Substance: ACETAMINOPHEN
  14. CELEXA [Suspect]
     Active Substance: CITALOPRAM HYDROBROMIDE
     Indication: DEPRESSION
     Route: 048
  15. AMIODARONE [Concomitant]
     Active Substance: AMIODARONE
  16. MULTIPLE VITAMIN [Concomitant]
     Active Substance: VITAMINS

REACTIONS (6)
  - Tremor [None]
  - Dyskinesia [None]
  - Tongue movement disturbance [None]
  - Confusional state [None]
  - Tardive dyskinesia [None]
  - Serotonin syndrome [None]

NARRATIVE: CASE EVENT DATE: 20150712
